FAERS Safety Report 9910861 (Version 3)
Quarter: 2014Q1

REPORT INFORMATION
  Report Type: Other
  Country: JP (occurrence: JP)
  Receive Date: 20140219
  Receipt Date: 20140314
  Transmission Date: 20141002
  Serious: Yes (Other)
  Sender: FDA-Public Use
  Company Number: JP-KOWA-2014S1000168

PATIENT
  Age: 51 Year
  Sex: Male

DRUGS (1)
  1. LIVALO [Suspect]
     Route: 048
     Dates: start: 200807, end: 200809

REACTIONS (1)
  - Oedema [Unknown]
